FAERS Safety Report 24773759 (Version 1)
Quarter: 2024Q4

REPORT INFORMATION
  Report Type: Spontaneous
  Country: US (occurrence: US)
  Receive Date: 20241225
  Receipt Date: 20241225
  Transmission Date: 20250115
  Serious: No
  Sender: ARDELYX
  Company Number: US-ARDELYX-2024ARDX008732

PATIENT
  Age: 74 Year
  Sex: Female

DRUGS (3)
  1. IBSRELA [Suspect]
     Active Substance: TENAPANOR HYDROCHLORIDE
     Indication: Constipation
     Dosage: 50 MILLIGRAM, QD (2 WEEKS)
     Route: 048
     Dates: start: 20241115, end: 202411
  2. IBSRELA [Suspect]
     Active Substance: TENAPANOR HYDROCHLORIDE
     Dosage: 50 MILLIGRAM, BID
     Route: 048
     Dates: start: 2024
  3. IBSRELA [Suspect]
     Active Substance: TENAPANOR HYDROCHLORIDE
     Dosage: 50 MILLIGRAM, QD
     Route: 048
     Dates: start: 2024

REACTIONS (5)
  - Anal incontinence [Unknown]
  - Abdominal pain [Unknown]
  - Diarrhoea [Unknown]
  - Product use in unapproved indication [Unknown]
  - Accidental underdose [Unknown]

NARRATIVE: CASE EVENT DATE: 20240101
